FAERS Safety Report 11464898 (Version 2)
Quarter: 2015Q3

REPORT INFORMATION
  Report Type: Report from Study
  Country: US (occurrence: US)
  Receive Date: 20150907
  Receipt Date: 20150929
  Transmission Date: 20151125
  Serious: No
  Sender: FDA-Public Use
  Company Number: US-AMGEN-USASP2015090102

PATIENT
  Age: 18 Year
  Sex: Female

DRUGS (1)
  1. ENBREL [Suspect]
     Active Substance: ETANERCEPT
     Indication: JUVENILE IDIOPATHIC ARTHRITIS
     Dosage: 25 MG, ONCE WEEKLY
     Route: 065

REACTIONS (7)
  - Nausea [Unknown]
  - Hypophagia [Unknown]
  - Heart rate increased [Unknown]
  - Blood electrolytes abnormal [Unknown]
  - Heart sounds abnormal [Unknown]
  - Arrhythmia [Unknown]
  - Dizziness [Unknown]
